FAERS Safety Report 9458720 (Version 2)
Quarter: 2013Q3

REPORT INFORMATION
  Report Type: Spontaneous
  Country: US (occurrence: US)
  Receive Date: 20130814
  Receipt Date: 20130923
  Transmission Date: 20140515
  Serious: Yes (Hospitalization)
  Sender: FDA-Public Use
  Company Number: US-CELGENEUS-163-21880-13081062

PATIENT
  Sex: Male

DRUGS (6)
  1. REVLIMID [Suspect]
     Indication: PLASMA CELL MYELOMA
     Dosage: 25 MILLIGRAM
     Route: 048
     Dates: start: 20130705, end: 20130726
  2. REVLIMID [Suspect]
     Route: 048
  3. BORTEZOMIB [Concomitant]
     Indication: PLASMA CELL MYELOMA
     Route: 058
     Dates: start: 201306, end: 20130726
  4. ANTIBIOTICS [Concomitant]
     Indication: PROPHYLAXIS
     Route: 065
  5. DEXAMETHASONE [Concomitant]
     Indication: PLASMA CELL MYELOMA
     Dates: start: 20130628, end: 20130726
  6. OXYCODONE [Concomitant]
     Indication: BONE LESION
     Route: 065
     Dates: start: 201305

REACTIONS (1)
  - Spinal fracture [Recovering/Resolving]
